FAERS Safety Report 9036941 (Version 1)
Quarter: 2013Q1

REPORT INFORMATION
  Report Type: Spontaneous
  Country: US (occurrence: None)
  Receive Date: 20130123
  Receipt Date: 20130123
  Transmission Date: 20140127
  Serious: Yes (Other)
  Sender: FDA-Public Use
  Company Number: None

PATIENT
  Age: 39 Year
  Sex: Male
  Weight: 100 kg

DRUGS (1)
  1. PREGABALIN(LYRICA) 75MG CAPSULE PFIZER [Suspect]
     Indication: NEURALGIA
     Route: 048
     Dates: start: 20121128, end: 20121205

REACTIONS (16)
  - Constipation [None]
  - Flatulence [None]
  - Speech disorder [None]
  - Memory impairment [None]
  - Fatigue [None]
  - Pain [None]
  - Neck pain [None]
  - Headache [None]
  - Nausea [None]
  - Stupor [None]
  - Dry mouth [None]
  - Dysgeusia [None]
  - Arthralgia [None]
  - Rash papular [None]
  - Blood glucose decreased [None]
  - Full blood count decreased [None]
